FAERS Safety Report 5178907-X (Version None)
Quarter: 2006Q4

REPORT INFORMATION
  Report Type: 
  Country: None (occurrence: None)
  Receive Date: 20061208
  Receipt Date: 20061130
  Transmission Date: 20070319
  Serious: Yes (Hospitalization)
  Sender: FDA-Public Use
  Company Number: SPV1-2006-01876

PATIENT
  Age: 10 Year
  Sex: Male
  Weight: 41.7 kg

DRUGS (3)
  1. DAYTRANA [Suspect]
     Indication: ATTENTION DEFICIT/HYPERACTIVITY DISORDER
     Dosage: 10 MG, TRANSDERMAL
     Route: 062
  2. STRATTERA [Concomitant]
  3. NAPROXEN [Concomitant]

REACTIONS (3)
  - COORDINATION ABNORMAL [None]
  - HYPOAESTHESIA [None]
  - NON-CARDIAC CHEST PAIN [None]
